FAERS Safety Report 10348150 (Version 1)
Quarter: 2014Q3

REPORT INFORMATION
  Report Type: Spontaneous
  Country: FR (occurrence: FR)
  Receive Date: 20140729
  Receipt Date: 20140729
  Transmission Date: 20150326
  Serious: Yes (Hospitalization)
  Sender: FDA-Public Use
  Company Number: FR-ASTRAZENECA-2014SE53562

PATIENT
  Age: 1016 Month
  Sex: Male

DRUGS (13)
  1. ATORVASTATINE [Concomitant]
     Active Substance: ATORVASTATIN
  2. HYDROXYCARBAMIDE [Concomitant]
     Active Substance: HYDROXYUREA
  3. TRINITRINE [Concomitant]
     Active Substance: NITROGLYCERIN
     Dosage: 0.15 MG IF NEEDED
  4. FUROSEMIDE. [Concomitant]
     Active Substance: FUROSEMIDE
  5. BRILIQUE [Suspect]
     Active Substance: TICAGRELOR
     Route: 048
     Dates: end: 201404
  6. KARDEGIC [Suspect]
     Active Substance: ASPIRIN LYSINE
     Dosage: ACETYLSALISYLATE DE LYSINE 75 MG DAILY
  7. PREGABALINE [Concomitant]
     Active Substance: PREGABALIN
  8. PARACETAMOL [Concomitant]
     Active Substance: ACETAMINOPHEN
     Dosage: 1000 MG IF NEEDED
  9. AMLODIPINE [Concomitant]
     Active Substance: AMLODIPINE BESYLATE
  10. KARDEGIC [Suspect]
     Active Substance: ASPIRIN LYSINE
     Route: 048
     Dates: end: 20140413
  11. ESOMEPRAZOLE [Concomitant]
     Active Substance: ESOMEPRAZOLE
  12. ALGINATE DE SODIUM + BICARBONATE DE SODIUM [Concomitant]
     Dosage: 1 SACHET DAILY
  13. ALFUZOSINE [Concomitant]
     Active Substance: ALFUZOSIN HYDROCHLORIDE

REACTIONS (12)
  - Inflammation [Unknown]
  - Chest pain [Unknown]
  - Dyspnoea [Unknown]
  - Vomiting [Unknown]
  - Abdominal pain [Unknown]
  - Diarrhoea [Unknown]
  - Angina pectoris [Unknown]
  - Electrocardiogram ST segment elevation [Unknown]
  - Therapy cessation [Unknown]
  - Anaemia [Not Recovered/Not Resolved]
  - Diverticulitis intestinal haemorrhagic [Unknown]
  - Rectal haemorrhage [Recovered/Resolved]

NARRATIVE: CASE EVENT DATE: 201404
